FAERS Safety Report 19433410 (Version 1)
Quarter: 2021Q2

REPORT INFORMATION
  Report Type: Spontaneous
  Country: US (occurrence: US)
  Receive Date: 20210617
  Receipt Date: 20210617
  Transmission Date: 20210717
  Serious: Yes (Hospitalization)
  Sender: FDA-Public Use
  Company Number: US-BAUSCH-BL-2021-021210

PATIENT
  Age: 12 Year
  Sex: Male

DRUGS (12)
  1. VANCOMYCIN [Concomitant]
     Active Substance: VANCOMYCIN
     Indication: COLITIS
  2. MESALAMINE. [Concomitant]
     Active Substance: MESALAMINE
     Indication: COLITIS
  3. METRONIDAZOLE. [Suspect]
     Active Substance: METRONIDAZOLE
     Indication: COLITIS
  4. AMOXICILLIN. [Concomitant]
     Active Substance: AMOXICILLIN
     Indication: COLITIS
  5. AMOXICILLIN. [Concomitant]
     Active Substance: AMOXICILLIN
     Indication: CHRONIC GRANULOMATOUS DISEASE
     Dosage: QUADRUPLE ANTIBIOTIC COCKTAIL
  6. DOXYCYCLINE. [Concomitant]
     Active Substance: DOXYCYCLINE
     Indication: CHRONIC GRANULOMATOUS DISEASE
     Dosage: QUADRUPLE ANTIBIOTIC COCKTAIL
  7. METRONIDAZOLE. [Suspect]
     Active Substance: METRONIDAZOLE
     Indication: CHRONIC GRANULOMATOUS DISEASE
     Dosage: QUADRUPLE ANTIBIOTIC COCKTAIL
     Route: 065
  8. MESALAMINE. [Concomitant]
     Active Substance: MESALAMINE
     Indication: CHRONIC GRANULOMATOUS DISEASE
  9. DOXYCYCLINE. [Concomitant]
     Active Substance: DOXYCYCLINE
     Indication: COLITIS
  10. VANCOMYCIN [Concomitant]
     Active Substance: VANCOMYCIN
     Indication: CHRONIC GRANULOMATOUS DISEASE
     Dosage: QUADRUPLE ANTIBIOTIC COCKTAIL
  11. PREDNISONE. [Concomitant]
     Active Substance: PREDNISONE
     Indication: CHRONIC GRANULOMATOUS DISEASE
     Dosage: GRADUAL WEANING
  12. PREDNISONE. [Concomitant]
     Active Substance: PREDNISONE
     Indication: COLITIS

REACTIONS (1)
  - Neurotoxicity [Recovered/Resolved]
